FAERS Safety Report 22817104 (Version 2)
Quarter: 2024Q1

REPORT INFORMATION
  Report Type: Spontaneous
  Country: DE (occurrence: DE)
  Receive Date: 20230812
  Receipt Date: 20240206
  Transmission Date: 20240409
  Serious: Yes (Hospitalization)
  Sender: FDA-Public Use
  Company Number: DE-SANDOZ-SDZ2023DE003389

PATIENT
  Age: 82 Year
  Sex: Female

DRUGS (3)
  1. METHOTREXATE [Suspect]
     Active Substance: METHOTREXATE
     Indication: Product used for unknown indication
     Route: 065
     Dates: start: 20180226
  2. PREDNISOLONE [Suspect]
     Active Substance: PREDNISOLONE
     Indication: Product used for unknown indication
     Route: 065
     Dates: start: 20180817
  3. TOFACITINIB CITRATE [Suspect]
     Active Substance: TOFACITINIB CITRATE
     Indication: Product used for unknown indication
     Dosage: DOSAGE TEXT: 5 MG, BID
     Route: 065
     Dates: start: 20180216

REACTIONS (2)
  - Fall [Recovered/Resolved]
  - Radius fracture [Recovered/Resolved]

NARRATIVE: CASE EVENT DATE: 20180918
